FAERS Safety Report 8059568-9 (Version None)
Quarter: 2012Q1

REPORT INFORMATION
  Report Type: 
  Country: None (occurrence: None)
  Receive Date: 20120120
  Receipt Date: 20120112
  Transmission Date: 20120608
  Serious: Yes (Hospitalization)
  Sender: FDA-Public Use
  Company Number: US-BAYER-2011-070124

PATIENT
  Age: 14 Year
  Sex: Female
  Weight: 77.098 kg

DRUGS (2)
  1. YASMIN [Suspect]
     Indication: CONTRACEPTION
     Dosage: UNK
     Route: 048
     Dates: start: 20060801, end: 20090101
  2. DROSPIRENONE AND ETHINYL ESTRADIOL [Suspect]
     Indication: CONTRACEPTION
     Dosage: UNK
     Route: 048
     Dates: start: 20060801, end: 20090101

REACTIONS (8)
  - ARRHYTHMIA [None]
  - PAIN [None]
  - CARDIAC DISORDER [None]
  - INJURY [None]
  - ANHEDONIA [None]
  - DEFORMITY [None]
  - ANXIETY [None]
  - DEPRESSION [None]
